FAERS Safety Report 21088808 (Version 5)
Quarter: 2022Q3

REPORT INFORMATION
  Report Type: Spontaneous
  Country: US (occurrence: US)
  Receive Date: 20220715
  Receipt Date: 20220930
  Transmission Date: 20221027
  Serious: Yes (Hospitalization, Other)
  Sender: FDA-Public Use
  Company Number: US-PFIZER INC-PV202200022603

PATIENT
  Age: 77 Year
  Sex: Female
  Weight: 51.26 kg

DRUGS (1)
  1. IBRANCE [Suspect]
     Active Substance: PALBOCICLIB
     Indication: Breast cancer metastatic
     Dosage: 125 MG
     Dates: end: 202208

REACTIONS (6)
  - Dehydration [Unknown]
  - Pneumonia [Unknown]
  - Fatigue [Recovered/Resolved with Sequelae]
  - Asthenia [Recovered/Resolved]
  - Malaise [Recovered/Resolved with Sequelae]
  - Wheezing [Not Recovered/Not Resolved]

NARRATIVE: CASE EVENT DATE: 20220801
